FAERS Safety Report 16058972 (Version 1)
Quarter: 2019Q1

REPORT INFORMATION
  Report Type: Spontaneous
  Country: SE (occurrence: SE)
  Receive Date: 20190311
  Receipt Date: 20190311
  Transmission Date: 20190418
  Serious: Yes (Hospitalization)
  Sender: FDA-Public Use
  Company Number: SE-PFIZER INC-2019097882

PATIENT
  Age: 29 Year
  Sex: Female

DRUGS (6)
  1. SERTRALINE HCL [Suspect]
     Active Substance: SERTRALINE HYDROCHLORIDE
     Dosage: 40 TABLETS EMPTY
     Route: 048
     Dates: start: 20170423, end: 20170423
  2. OXASCAND [Suspect]
     Active Substance: OXAZEPAM
     Dosage: 60 MG, UNK (6 TABLETS)
     Route: 048
     Dates: start: 20170423, end: 20170423
  3. MIRTAZAPINE. [Suspect]
     Active Substance: MIRTAZAPINE
     Dosage: 28 TABLETS THAT WERE EMPTY
     Route: 048
     Dates: start: 20170423, end: 20170423
  4. COCILLANA-ETYFIN [ETHYLMORPHINE HYDROCHLORIDE;GUAREA GUIDONIA;POLYGALA [Suspect]
     Active Substance: ETHYLMORPHINE HYDROCHLORIDE
     Dosage: 250 ML, UNK
     Route: 048
     Dates: start: 20170423, end: 20170423
  5. SOBRIL [Suspect]
     Active Substance: OXAZEPAM
     Dosage: 125 MG, UNK (25 TABLETS)
     Route: 048
     Dates: start: 20170423, end: 20170423
  6. FLUNITRAZEPAM [Suspect]
     Active Substance: FLUNITRAZEPAM
     Dosage: UNK
     Route: 048
     Dates: start: 20170423, end: 20170423

REACTIONS (3)
  - Intentional self-injury [Unknown]
  - Depressed level of consciousness [Unknown]
  - Intentional overdose [Unknown]

NARRATIVE: CASE EVENT DATE: 20170424
